FAERS Safety Report 7860628-3 (Version None)
Quarter: 2011Q4

REPORT INFORMATION
  Report Type: 
  Country: None (occurrence: None)
  Receive Date: 20111027
  Receipt Date: 20111024
  Transmission Date: 20120403
  Serious: Yes (Death, Life-Threatening)
  Sender: FDA-Public Use
  Company Number: IT-CELGENEUS-083-21880-11071063

PATIENT
  Age: 84 Year
  Sex: Male
  Weight: 68 kg

DRUGS (8)
  1. REVLIMID [Suspect]
     Dosage: 2.5 MILLIGRAM
     Route: 048
     Dates: start: 20110205, end: 20110213
  2. TRANEX [Concomitant]
     Dosage: 1000 MILLIGRAM
     Route: 065
  3. REVLIMID [Suspect]
     Dosage: 5 MILLIGRAM
     Route: 048
     Dates: end: 20110304
  4. BACTRIM [Concomitant]
     Dosage: 2 TABLET
     Route: 065
  5. PANTOPRAZOLE [Concomitant]
     Dosage: 20 MILLIGRAM
     Route: 065
  6. ALLOPURINOL [Concomitant]
     Dosage: 300 MILLIGRAM
     Route: 065
  7. EPREX [Concomitant]
     Dosage: 4000 IU (INTERNATIONAL UNIT)
     Route: 065
  8. REVLIMID [Suspect]
     Dosage: 5 MILLIGRAM
     Route: 048
     Dates: start: 20110124

REACTIONS (1)
  - ACUTE MYELOID LEUKAEMIA [None]
